FAERS Safety Report 18013216 (Version 3)
Quarter: 2021Q2

REPORT INFORMATION
  Report Type: Spontaneous
  Country: US (occurrence: US)
  Receive Date: 20200713
  Receipt Date: 20210517
  Transmission Date: 20210717
  Serious: Yes (Other)
  Sender: FDA-Public Use
  Company Number: US-PFIZER INC-2019508912

PATIENT
  Age: 67 Year
  Sex: Female

DRUGS (1)
  1. XELJANZ XR [Suspect]
     Active Substance: TOFACITINIB CITRATE
     Dosage: 11 MG, DAILY (TAKE 1 TABLET DAILY)

REACTIONS (7)
  - Sneezing [Unknown]
  - Headache [Unknown]
  - Intentional self-injury [Unknown]
  - Memory impairment [Unknown]
  - Dysphonia [Unknown]
  - Panic reaction [Unknown]
  - Pain in extremity [Unknown]
